FAERS Safety Report 4366834-7 (Version None)
Quarter: 2004Q2

REPORT INFORMATION
  Report Type: 
  Country: None (occurrence: None)
  Receive Date: 20040528
  Receipt Date: 20030715
  Transmission Date: 20050107
  Serious: No
  Sender: FDA-Public Use
  Company Number: US-GLAXOSMITHKLINE-A0416874A

PATIENT
  Sex: Male

DRUGS (2)
  1. BACTROBAN [Suspect]
     Route: 061
  2. AUGMENTIN [Concomitant]
     Route: 048

REACTIONS (1)
  - DRUG INEFFECTIVE [None]
